FAERS Safety Report 8295144-0 (Version None)
Quarter: 2012Q2

REPORT INFORMATION
  Report Type: 
  Country: None (occurrence: None)
  Receive Date: 20120418
  Receipt Date: 20120413
  Transmission Date: 20120825
  Serious: Yes (Disabling, Other)
  Sender: FDA-Public Use
  Company Number: US-PFIZER INC-2012092776

PATIENT
  Sex: Male
  Weight: 90.703 kg

DRUGS (1)
  1. VIAGRA [Suspect]
     Dosage: 100 MG, AS NEEDED (ONE TIME OR TWO TIMES PER WEEK)

REACTIONS (4)
  - FINGER AMPUTATION [None]
  - INSOMNIA [None]
  - PAIN IN EXTREMITY [None]
  - HYPERTENSION [None]
